FAERS Safety Report 9209110 (Version 3)
Quarter: 2013Q3

REPORT INFORMATION
  Report Type: Spontaneous
  Country: BR (occurrence: BR)
  Receive Date: 20130404
  Receipt Date: 20130906
  Transmission Date: 20140515
  Serious: Yes (Other)
  Sender: FDA-Public Use
  Company Number: PHHY2013BR031666

PATIENT
  Sex: Male
  Weight: 70 kg

DRUGS (5)
  1. EXELON PATCH [Suspect]
     Indication: DEMENTIA ALZHEIMER^S TYPE
     Dosage: 13.3 MG, (15 CM2) ONE PATCH DAILY
     Route: 062
  2. RISPERIDONE [Suspect]
     Dosage: 0.5 DF, DAILY (HALF TABLET PER DAY)
     Route: 048
  3. MEMANTINE HYDROCHLORIDE [Concomitant]
     Dosage: UNK UKN, UNK
  4. OMEGA 3 [Concomitant]
     Dosage: UNK UKN, UNK
  5. CORUS H [Concomitant]
     Dosage: UNK UKN, UNK

REACTIONS (1)
  - Motor dysfunction [Not Recovered/Not Resolved]
